FAERS Safety Report 22942192 (Version 2)
Quarter: 2023Q4

REPORT INFORMATION
  Report Type: Other
  Country: CN (occurrence: None)
  Receive Date: 20230914
  Receipt Date: 20231123
  Transmission Date: 20240110
  Serious: Yes (Other)
  Sender: FDA-Public Use
  Company Number: CN-ROCHE-3421494

PATIENT

DRUGS (2)
  1. SOMATROPIN [Suspect]
     Active Substance: SOMATROPIN
     Indication: Small for dates baby
     Route: 058
  2. SOMATROPIN [Suspect]
     Active Substance: SOMATROPIN
     Route: 058

REACTIONS (23)
  - Encephalitis viral [Unknown]
  - Cataract congenital [Unknown]
  - Upper respiratory tract infection [Unknown]
  - Pyrexia [Unknown]
  - Cough [Unknown]
  - Blood insulin increased [Unknown]
  - Rhinitis [Unknown]
  - Rash [Unknown]
  - Respiratory tract infection [Unknown]
  - Vomiting [Unknown]
  - Tonsillitis [Unknown]
  - Abdominal pain [Unknown]
  - Bronchitis [Unknown]
  - Blood glucose increased [Unknown]
  - Head injury [Unknown]
  - Pneumonia [Unknown]
  - Sneezing [Unknown]
  - Dyspepsia [Unknown]
  - Dermatitis allergic [Unknown]
  - Arthralgia [Unknown]
  - Pain in extremity [Unknown]
  - Henoch-Schonlein purpura [Unknown]
  - Hand-foot-and-mouth disease [Unknown]
